FAERS Safety Report 17473091 (Version 1)
Quarter: 2020Q1

REPORT INFORMATION
  Report Type: Spontaneous
  Country: AU (occurrence: AU)
  Receive Date: 20200228
  Receipt Date: 20200228
  Transmission Date: 20200409
  Serious: Yes (Other)
  Sender: FDA-Public Use
  Company Number: NVSC2020AU047424

PATIENT
  Age: 7 Year
  Sex: Female

DRUGS (1)
  1. TEGRETOL [Suspect]
     Active Substance: CARBAMAZEPINE
     Indication: PRODUCT USED FOR UNKNOWN INDICATION
     Dosage: 7.5 ML, BID
     Route: 065

REACTIONS (7)
  - Eye irritation [Unknown]
  - Eosinophilia [Unknown]
  - Genital rash [Unknown]
  - Blood creatine phosphokinase increased [Unknown]
  - Muscular weakness [Unknown]
  - Mouth ulceration [Unknown]
  - Eye pain [Unknown]
